FAERS Safety Report 10174679 (Version 1)
Quarter: 2014Q2

REPORT INFORMATION
  Report Type: Spontaneous
  Country: GB (occurrence: GB)
  Receive Date: 20140515
  Receipt Date: 20140515
  Transmission Date: 20141212
  Serious: Yes (Other)
  Sender: FDA-Public Use
  Company Number: GB-GLAXOSMITHKLINE-B0992268A

PATIENT
  Age: 21 Year
  Sex: Female
  Weight: 57.75 kg

DRUGS (6)
  1. ONDANSETRON [Suspect]
     Indication: URETHRITIS
     Route: 042
     Dates: end: 20140409
  2. CLEXANE [Concomitant]
     Dosage: 40MG PER DAY
     Route: 058
     Dates: start: 20140407
  3. OMEPRAZOLE [Concomitant]
     Route: 048
     Dates: start: 20140408
  4. PARACETAMOL [Concomitant]
     Dosage: 4G PER DAY
     Route: 048
     Dates: start: 20140406
  5. TRAMADOL [Concomitant]
     Route: 048
     Dates: start: 20140409
  6. CLOTRIMAZOLE [Concomitant]
     Route: 061
     Dates: start: 20140406

REACTIONS (3)
  - Erythema [Recovered/Resolved]
  - Urticaria [Recovered/Resolved]
  - Throat irritation [Recovered/Resolved]
